FAERS Safety Report 20175580 (Version 1)
Quarter: 2021Q4

REPORT INFORMATION
  Report Type: Spontaneous
  Country: US (occurrence: US)
  Receive Date: 20211213
  Receipt Date: 20211213
  Transmission Date: 20220303
  Serious: Yes (Other)
  Sender: FDA-Public Use
  Company Number: ALC2021US005759

PATIENT
  Sex: Female

DRUGS (1)
  1. SYSTANE ULTRA [Suspect]
     Active Substance: POLYETHYLENE GLYCOL 400\PROPYLENE GLYCOL
     Indication: Product used for unknown indication
     Dosage: 1 DRP IN EACH EYE
     Route: 047
     Dates: start: 202108

REACTIONS (10)
  - Extraocular muscle paresis [Not Recovered/Not Resolved]
  - Swollen tear duct [Not Recovered/Not Resolved]
  - Dacryostenosis acquired [Not Recovered/Not Resolved]
  - Eyelid margin crusting [Not Recovered/Not Resolved]
  - Swelling of eyelid [Not Recovered/Not Resolved]
  - Amblyopia [Not Recovered/Not Resolved]
  - Skin wrinkling [Not Recovered/Not Resolved]
  - Expired product administered [Unknown]
  - Nausea [Recovering/Resolving]
  - Eye irritation [Not Recovered/Not Resolved]
